FAERS Safety Report 8541602-0 (Version None)
Quarter: 2012Q3

REPORT INFORMATION
  Report Type: 
  Country: None (occurrence: None)
  Receive Date: 20120726
  Receipt Date: 20111128
  Transmission Date: 20120928
  Serious: No
  Sender: FDA-Public Use
  Company Number: US-JHP PHARMACEUTICALS, LLC-JHP201100617

PATIENT
  Sex: Female

DRUGS (1)
  1. CORTISPORIN TC OTIC [Suspect]
     Indication: EAR INFECTION
     Dosage: 3 DROPS 3 X/DAY VIA OTIC DROPS; TOOK IT FOR 2 DAYS
     Route: 050
     Dates: start: 20111121, end: 20111123

REACTIONS (3)
  - AURICULAR SWELLING [None]
  - INSTILLATION SITE PRURITUS [None]
  - INSTILLATION SITE DRYNESS [None]
